FAERS Safety Report 23482249 (Version 4)
Quarter: 2024Q1

REPORT INFORMATION
  Report Type: Spontaneous
  Country: US (occurrence: US)
  Receive Date: 20240205
  Receipt Date: 20240304
  Transmission Date: 20240410
  Serious: Yes (Hospitalization, Other)
  Sender: FDA-Public Use
  Company Number: US-BRISTOL-MYERS SQUIBB COMPANY-2024-017399

PATIENT
  Age: 83 Year
  Sex: Female

DRUGS (1)
  1. LENALIDOMIDE [Suspect]
     Active Substance: LENALIDOMIDE
     Indication: Osteoarthritis
     Route: 048
     Dates: start: 20231110

REACTIONS (2)
  - Hypokalaemia [Recovering/Resolving]
  - Asthenia [Recovering/Resolving]
